FAERS Safety Report 8770946 (Version 1)
Quarter: 2012Q4

REPORT INFORMATION
  Report Type: 
  Country: FR (occurrence: FR)
  Receive Date: 20120906
  Receipt Date: 20120906
  Transmission Date: 20130627
  Serious: Yes (Other)
  Sender: FDA-Public Use
  Company Number: FR-PFIZER INC-2012214645

PATIENT
  Age: 20 Year
  Sex: Female
  Weight: 45.3 kg

DRUGS (11)
  1. NEURONTIN [Suspect]
     Indication: PAIN IN EXTREMITY
     Dosage: 400 mg, 3x/day
     Route: 048
     Dates: start: 20120730, end: 20120808
  2. NEURONTIN [Suspect]
     Dosage: 400 mg in the morning, 400 mg at noon and 500 mg in the evening
     Route: 048
     Dates: start: 20120809, end: 20120810
  3. LAROXYL [Concomitant]
     Dosage: 15-19 drops daily
     Dates: start: 20120730
  4. RIVOTRIL [Concomitant]
     Dosage: 2 mg, 1x/day
     Dates: start: 20120723
  5. LYRICA [Concomitant]
     Dosage: 300 mg, 3x/day
     Dates: end: 20120722
  6. LYRICA [Concomitant]
     Dosage: 50 mg, 1x/day
     Dates: start: 20120723, end: 20120816
  7. VESICARE [Concomitant]
     Indication: HYPERTONIC BLADDER
     Dosage: 10 mg, 1x/day
     Dates: start: 20120723
  8. GUTRON [Concomitant]
     Indication: HYPOTENSION
     Dosage: UNK
     Dates: start: 20120730
  9. FURADANTINE [Concomitant]
     Indication: CYSTITIS
     Dosage: 100 mg, 3x/day
     Dates: start: 20120807, end: 20120811
  10. DOLIPRANE [Concomitant]
     Indication: PAIN
     Dosage: UNK
  11. LANSOYL [Concomitant]
     Dosage: if needed

REACTIONS (1)
  - Neutropenia [Recovered/Resolved]
